FAERS Safety Report 9520027 (Version 1)
Quarter: 2013Q1

REPORT INFORMATION
  Report Type: Spontaneous
  Country: US (occurrence: None)
  Receive Date: 20130305
  Receipt Date: 20130305
  Transmission Date: 20140127
  Serious: Yes (Other)
  Sender: FDA-Public Use
  Company Number: 163-21880-12012233

PATIENT
  Age: 65 Year
  Sex: Male

DRUGS (4)
  1. REVLIMID (LENALIDOMIDE) (15 MILLIGRAM, CAPSULES) [Suspect]
     Indication: PLASMA CELL MYELOMA
     Dosage: 15 MG, DAILY X 21/28 DAYS, PO
     Route: 048
     Dates: start: 201103, end: 201201
  2. DECADRON [Concomitant]
  3. BIAXIN (CLARITHROMYCIN) (UNKNOWN) [Concomitant]
  4. ANTIVAN (LORAZEPAM) (UNKNOWN) [Concomitant]

REACTIONS (1)
  - Neuropathy peripheral [None]
